FAERS Safety Report 9310456 (Version 1)
Quarter: 2013Q2

REPORT INFORMATION
  Report Type: Spontaneous
  Country: US (occurrence: US)
  Receive Date: 20130527
  Receipt Date: 20130527
  Transmission Date: 20140414
  Serious: No
  Sender: FDA-Public Use
  Company Number: US-PFIZER INC-2013159711

PATIENT
  Age: 60 Year
  Sex: Female
  Weight: 73 kg

DRUGS (2)
  1. NEURONTIN [Suspect]
     Indication: DIABETIC NEUROPATHY
     Dosage: 300 MG, 1X/DAY
     Dates: start: 2003, end: 201305
  2. NORCO [Concomitant]
     Indication: PROCEDURAL PAIN
     Dosage: 325/10 MG, 1X/DAY

REACTIONS (1)
  - Fibromyalgia [Unknown]
